FAERS Safety Report 14148472 (Version 1)
Quarter: 2017Q4

REPORT INFORMATION
  Report Type: Spontaneous
  Country: NO (occurrence: NO)
  Receive Date: 20171031
  Receipt Date: 20171031
  Transmission Date: 20180321
  Serious: Yes (Disabling, Other)
  Sender: FDA-Public Use
  Company Number: None

PATIENT
  Age: 37 Year
  Sex: Male
  Weight: 92 kg

DRUGS (5)
  1. VITAMIN B [Concomitant]
     Active Substance: VITAMIN B
  2. C [Concomitant]
  3. D [Concomitant]
  4. CIPRALEX [Suspect]
     Active Substance: ESCITALOPRAM OXALATE
     Indication: ANXIETY
     Dosage: ?          QUANTITY:1 TABLET(S);?
     Route: 048
     Dates: start: 20161026, end: 20161029
  5. CIPRALEX [Suspect]
     Active Substance: ESCITALOPRAM OXALATE
     Indication: STRESS
     Dosage: ?          QUANTITY:1 TABLET(S);?
     Route: 048
     Dates: start: 20161026, end: 20161029

REACTIONS (9)
  - Hyposmia [None]
  - Memory impairment [None]
  - Hypogeusia [None]
  - Disturbance in attention [None]
  - Anhedonia [None]
  - Feeling abnormal [None]
  - Loss of libido [None]
  - Anorgasmia [None]
  - Erectile dysfunction [None]

NARRATIVE: CASE EVENT DATE: 20161026
